FAERS Safety Report 9147435 (Version 2)
Quarter: 2013Q1

REPORT INFORMATION
  Report Type: Spontaneous
  Country: US (occurrence: US)
  Receive Date: 20130307
  Receipt Date: 20130326
  Transmission Date: 20140127
  Serious: Yes (Other)
  Sender: FDA-Public Use
  Company Number: US-PFIZER INC-2013079786

PATIENT
  Age: 55 Year
  Sex: Female
  Weight: 109 kg

DRUGS (3)
  1. NEURONTIN [Suspect]
     Indication: NEURALGIA
     Dosage: 600 MG, 3X/DAY
     Route: 048
  2. MELOXICAM [Concomitant]
     Dosage: 15 MG, 1X/DAY
  3. AMITRIPTYLINE [Concomitant]
     Dosage: 25 MG, 1X/DAY

REACTIONS (1)
  - Blood cholesterol increased [Unknown]
